FAERS Safety Report 4630106-3 (Version None)
Quarter: 2005Q2

REPORT INFORMATION
  Report Type: 
  Country: None (occurrence: None)
  Receive Date: 20050408
  Receipt Date: 20050318
  Transmission Date: 20051028
  Serious: Yes (Hospitalization, Other)
  Sender: FDA-Public Use
  Company Number: US-GLAXOSMITHKLINE-A0550434A

PATIENT
  Age: 53 Year
  Sex: Female
  Weight: 84.5 kg

DRUGS (12)
  1. ESKALITH CR [Suspect]
     Indication: BIPOLAR DISORDER
     Dosage: 900MG TWICE PER DAY
     Route: 048
     Dates: start: 20050303, end: 20050317
  2. LITHIUM [Suspect]
     Indication: BIPOLAR DISORDER
     Dosage: 900MG TWICE PER DAY
     Route: 048
     Dates: end: 20050303
  3. GLUCOPHAGE [Concomitant]
     Indication: DRUG USE FOR UNKNOWN INDICATION
  4. GLIPIZIDE [Concomitant]
     Indication: DRUG USE FOR UNKNOWN INDICATION
  5. EFFEXOR [Concomitant]
     Indication: DRUG USE FOR UNKNOWN INDICATION
  6. RISPERDAL [Concomitant]
     Indication: DRUG USE FOR UNKNOWN INDICATION
  7. SYNTHROID [Concomitant]
     Indication: DRUG USE FOR UNKNOWN INDICATION
  8. ALLEGRA [Concomitant]
     Indication: DRUG USE FOR UNKNOWN INDICATION
  9. DESYREL [Concomitant]
     Indication: DRUG USE FOR UNKNOWN INDICATION
  10. NADOLOL [Concomitant]
     Indication: DRUG USE FOR UNKNOWN INDICATION
  11. PRINIVIL [Concomitant]
     Indication: DRUG USE FOR UNKNOWN INDICATION
     Dosage: 5MG PER DAY
     Route: 048
     Dates: start: 20050305, end: 20050309
  12. PRINIVIL [Concomitant]
     Dosage: 10MG PER DAY
     Route: 048
     Dates: start: 20050310, end: 20050311

REACTIONS (5)
  - DEPRESSED LEVEL OF CONSCIOUSNESS [None]
  - DRUG LEVEL INCREASED [None]
  - HYPOGLYCAEMIA [None]
  - MENTAL STATUS CHANGES [None]
  - URINARY TRACT INFECTION [None]
